FAERS Safety Report 8165727-7 (Version None)
Quarter: 2012Q1

REPORT INFORMATION
  Report Type: 
  Country: None (occurrence: None)
  Receive Date: 20120227
  Receipt Date: 20110131
  Transmission Date: 20120608
  Serious: No
  Sender: FDA-Public Use
  Company Number: US-MYLANLABS-2011S1000594

PATIENT
  Age: 19 Year
  Sex: Female
  Weight: 61.24 kg

DRUGS (3)
  1. AMNESTEEM [Suspect]
     Route: 048
     Dates: end: 20101201
  2. AMNESTEEM [Suspect]
     Indication: ACNE
     Route: 048
  3. CLARAVIS [Suspect]
     Indication: ACNE
     Dates: start: 20100701

REACTIONS (2)
  - DRUG INEFFECTIVE [None]
  - ACNE [None]
